FAERS Safety Report 10926353 (Version 1)
Quarter: 2015Q1

REPORT INFORMATION
  Report Type: Spontaneous
  Country: US (occurrence: None)
  Receive Date: 20150317
  Receipt Date: 20150317
  Transmission Date: 20150721
  Serious: No
  Sender: FDA-Public Use
  Company Number: None

PATIENT
  Sex: Female
  Weight: 60.33 kg

DRUGS (9)
  1. FISH OIL [Concomitant]
     Active Substance: FISH OIL
  2. GABAPENTIN. [Concomitant]
     Active Substance: GABAPENTIN
  3. PRO-BIOTIC [Concomitant]
  4. D3 [Concomitant]
     Active Substance: 25-HYDROXYCHOLECALCIFEROL, 5-TRANS-
  5. ZOLPIDEM TARTRATE 5 MG TABLET TORRENT PHARMAC [Suspect]
     Active Substance: ZOLPIDEM TARTRATE
     Indication: INSOMNIA
     Dosage: 1 TABLET
     Route: 048
  6. ESTRACE [Concomitant]
     Active Substance: ESTRADIOL
  7. CHONDROITIN SULFATE (BOVINE)\DIMETHYL SULFONE\GLUCOSAMINE SULFATE [Concomitant]
     Active Substance: CHONDROITIN SULFATE (BOVINE)\DIMETHYL SULFONE\GLUCOSAMINE SULFATE
  8. MULTIVITAMIN [Concomitant]
     Active Substance: VITAMINS
  9. NATURAL PSYLLIUM HUSK FIBER [Concomitant]

REACTIONS (2)
  - Abnormal sleep-related event [None]
  - Memory impairment [None]
